FAERS Safety Report 8478364-1 (Version None)
Quarter: 2012Q2

REPORT INFORMATION
  Report Type: 
  Country: None (occurrence: None)
  Receive Date: 20120629
  Receipt Date: 20120627
  Transmission Date: 20120825
  Serious: Yes (Death, Life-Threatening, Hospitalization, Disabling, Other)
  Sender: FDA-Public Use
  Company Number: PHHY2012CA039994

PATIENT
  Sex: Female

DRUGS (4)
  1. LECTOPAM TAB [Concomitant]
     Dosage: 3 MG, QHS
  2. ZOLOFT [Concomitant]
     Dosage: 100 MG, QD
  3. FLUANXOL [Concomitant]
     Dosage: 3 MG, QHS
  4. CLOZARIL [Suspect]
     Indication: SCHIZOAFFECTIVE DISORDER
     Dosage: 600 MG, UNK
     Route: 048
     Dates: start: 19950101

REACTIONS (3)
  - DEATH [None]
  - ADENOCARCINOMA PANCREAS [None]
  - PANCREATIC CARCINOMA [None]
